FAERS Safety Report 23122685 (Version 1)
Quarter: 2023Q4

REPORT INFORMATION
  Report Type: Spontaneous
  Country: US (occurrence: US)
  Receive Date: 20231030
  Receipt Date: 20231030
  Transmission Date: 20240110
  Serious: No
  Sender: FDA-Public Use
  Company Number: US-BRISTOL-MYERS SQUIBB COMPANY-2023-152998

PATIENT
  Age: 35 Year
  Sex: Male

DRUGS (1)
  1. SOTYKTU [Suspect]
     Active Substance: DEUCRAVACITINIB
     Indication: Psoriasis
     Dosage: ONGOING
     Route: 048
     Dates: start: 20230601

REACTIONS (3)
  - Skin exfoliation [Unknown]
  - Acne [Unknown]
  - Aphthous ulcer [Unknown]
